FAERS Safety Report 22089522 (Version 1)
Quarter: 2023Q1

REPORT INFORMATION
  Report Type: Spontaneous
  Country: US (occurrence: None)
  Receive Date: 20230311
  Receipt Date: 20230311
  Transmission Date: 20230417
  Serious: No
  Sender: FDA-Public Use
  Company Number: None

PATIENT
  Age: 13 Year
  Sex: Male

DRUGS (1)
  1. METHYLPHENIDATE [Suspect]
     Active Substance: METHYLPHENIDATE
     Dosage: OTHER QUANTITY : 90 TABLET(S);?
     Route: 048

REACTIONS (5)
  - Drug ineffective [None]
  - Educational problem [None]
  - Product supply issue [None]
  - Product substitution issue [None]
  - Loss of personal independence in daily activities [None]

NARRATIVE: CASE EVENT DATE: 20230118
